FAERS Safety Report 16451177 (Version 1)
Quarter: 2019Q2

REPORT INFORMATION
  Report Type: Spontaneous
  Country: US (occurrence: US)
  Receive Date: 20190509
  Receipt Date: 20190509
  Transmission Date: 20190711
  Serious: No
  Sender: FDA-Public Use
  Company Number: None

PATIENT
  Age: 64 Year
  Sex: Male

DRUGS (1)
  1. ABIRATERONE TAB [Suspect]
     Active Substance: ABIRATERONE
     Dates: start: 201904

REACTIONS (2)
  - Insomnia [None]
  - Poor quality sleep [None]

NARRATIVE: CASE EVENT DATE: 20190408
